FAERS Safety Report 7314370-8 (Version None)
Quarter: 2011Q1

REPORT INFORMATION
  Report Type: 
  Country: None (occurrence: None)
  Receive Date: 20110225
  Receipt Date: 20100907
  Transmission Date: 20110831
  Serious: No
  Sender: FDA-Public Use
  Company Number: US-MYLANLABS-2010S1014074

PATIENT
  Age: 20 Year
  Sex: Female
  Weight: 70.31 kg

DRUGS (3)
  1. AMNESTEEM [Suspect]
     Route: 048
     Dates: start: 20100601, end: 20100730
  2. LUTERA-28 [Concomitant]
     Indication: ORAL CONTRACEPTION
     Dates: start: 20100301
  3. AMNESTEEM [Suspect]
     Indication: ACNE CYSTIC
     Route: 048
     Dates: start: 20100401, end: 20100601

REACTIONS (2)
  - ANXIETY [None]
  - DRY SKIN [None]
